FAERS Safety Report 10057620 (Version 2)
Quarter: 2014Q2

REPORT INFORMATION
  Report Type: Report from Study
  Country: GB (occurrence: GB)
  Receive Date: 20140404
  Receipt Date: 20140404
  Transmission Date: 20141212
  Serious: Yes (Other)
  Sender: FDA-Public Use
  Company Number: GB-ROCHE-1181649

PATIENT
  Age: 65 Year
  Sex: Female
  Weight: 74.5 kg

DRUGS (21)
  1. OBINUTUZUMAB [Suspect]
     Indication: B-CELL LYMPHOMA
     Dosage: LAST VOLUME TAKEN: 250 ML, DOSE CONCENTRATION: 4 MG/ML, DATE OF MOST RECENT DOSE : 03/JAN/2013
     Route: 042
     Dates: start: 20120613
  2. BENDAMUSTINE [Suspect]
     Indication: B-CELL LYMPHOMA
     Dosage: LAST DOSE TAKEN: 105 MG, DATE OF MOST RECENT DOSE : 08/NOV/2012
     Route: 042
     Dates: start: 20120613
  3. PIRITON [Concomitant]
     Indication: PREMEDICATION
     Route: 065
     Dates: start: 20120613, end: 20130208
  4. PARACETAMOL [Concomitant]
     Indication: PREMEDICATION
     Route: 065
     Dates: start: 2007
  5. PARACETAMOL [Concomitant]
     Indication: PAIN
     Route: 065
     Dates: start: 20120613, end: 20130208
  6. HYDROCORTISONE [Concomitant]
     Indication: PREMEDICATION
     Route: 065
     Dates: start: 20120613, end: 20130208
  7. IBUPROFEN [Concomitant]
     Indication: PAIN
     Route: 065
     Dates: start: 2007
  8. VENTOLIN [Concomitant]
     Indication: CHRONIC OBSTRUCTIVE PULMONARY DISEASE
     Route: 065
     Dates: start: 20110914
  9. FLUTICASONE PROPIONATE/SALMETEROL [Concomitant]
     Indication: CHRONIC OBSTRUCTIVE PULMONARY DISEASE
     Route: 048
     Dates: start: 20120125
  10. FLUPHENAZINE DECANOATE [Concomitant]
     Indication: SCHIZOPHRENIA
     Route: 065
     Dates: start: 1992
  11. SIMVASTATIN [Concomitant]
     Indication: HYPERCHOLESTEROLAEMIA
     Route: 065
     Dates: start: 20111024
  12. FLUCONAZOLE [Concomitant]
     Indication: ORAL CANDIDIASIS
     Route: 065
     Dates: start: 20121105, end: 20130127
  13. LANSOPRAZOLE [Concomitant]
     Indication: GASTROOESOPHAGEAL REFLUX DISEASE
     Dosage: 30 MG
     Route: 065
     Dates: start: 20130118
  14. TRIMOXAZOLE DS [Concomitant]
     Indication: ORAL CANDIDIASIS
     Dosage: 100 MG
     Route: 065
     Dates: start: 20130118, end: 20130128
  15. FLUCLOXACILLIN [Concomitant]
     Route: 065
     Dates: start: 20121220, end: 20121226
  16. ACICLOVIR [Concomitant]
     Indication: HERPES ZOSTER
     Route: 065
     Dates: start: 20120816, end: 20130208
  17. CODEINE [Concomitant]
     Indication: HERPES ZOSTER
     Route: 065
     Dates: start: 20120816
  18. AMITRIPTYLINE [Concomitant]
     Indication: HERPES ZOSTER
     Route: 065
     Dates: start: 20120816
  19. ONDANSETRON [Concomitant]
     Indication: PREMEDICATION
     Route: 065
     Dates: start: 20120711, end: 20130208
  20. CO-TRIMOXAZOLE [Concomitant]
     Route: 065
     Dates: start: 20120711, end: 20130208
  21. CO-AMOXICLAV [Concomitant]
     Route: 065
     Dates: start: 20121220, end: 20121220

REACTIONS (1)
  - Pneumonitis [Recovered/Resolved]
